FAERS Safety Report 21300270 (Version 1)
Quarter: 2022Q3

REPORT INFORMATION
  Report Type: Spontaneous
  Country: JP (occurrence: JP)
  Receive Date: 20220906
  Receipt Date: 20220906
  Transmission Date: 20221027
  Serious: Yes (Other)
  Sender: FDA-Public Use
  Company Number: JP-SUN PHARMACEUTICAL INDUSTRIES LTD-2022RR-353586

PATIENT
  Age: 74 Year
  Sex: Female

DRUGS (4)
  1. OCTREOTIDE [Suspect]
     Active Substance: OCTREOTIDE
     Indication: Metastasis
     Dosage: UNK, AT 70 YO
     Route: 065
  2. CARBOPLATIN [Suspect]
     Active Substance: CARBOPLATIN
     Indication: Metastasis
     Dosage: UNK, AT 72 YO
     Route: 065
  3. ETOPOSIDE [Suspect]
     Active Substance: ETOPOSIDE
     Indication: Metastasis
     Dosage: UNK, AT 72 YO
     Route: 065
  4. STREPTOZOCIN [Suspect]
     Active Substance: STREPTOZOCIN
     Indication: Metastasis
     Dosage: UNK, AT 73 YO
     Route: 065

REACTIONS (1)
  - Malignant neoplasm progression [Unknown]
